APPROVED DRUG PRODUCT: DESVENLAFAXINE
Active Ingredient: DESVENLAFAXINE FUMARATE
Strength: EQ 50MG BASE
Dosage Form/Route: TABLET, EXTENDED RELEASE;ORAL
Application: N205208 | Product #001
Applicant: TEVA PHARMACEUTICALS USA
Approved: Oct 11, 2013 | RLD: No | RS: No | Type: DISCN